FAERS Safety Report 17184829 (Version 1)
Quarter: 2019Q4

REPORT INFORMATION
  Report Type: Spontaneous
  Country: US (occurrence: US)
  Receive Date: 20191220
  Receipt Date: 20191220
  Transmission Date: 20200122
  Serious: No
  Sender: FDA-Public Use
  Company Number: US-IPSEN BIOPHARMACEUTICALS, INC.-2011-1780

PATIENT
  Sex: Female
  Weight: 34.8 kg

DRUGS (2)
  1. TEV-TROPIN [Suspect]
     Active Substance: SOMATROPIN
     Indication: PRODUCT USED FOR UNKNOWN INDICATION
     Route: 058
  2. INCRELEX [Suspect]
     Active Substance: MECASERMIN
     Indication: INSULIN-LIKE GROWTH FACTOR DECREASED
     Dosage: STRENGTH: 40 MG/4 ML (4.6 MG)
     Route: 058
     Dates: start: 20100917

REACTIONS (1)
  - Osteofibroma [Unknown]
